FAERS Safety Report 25366464 (Version 1)
Quarter: 2025Q2

REPORT INFORMATION
  Report Type: Spontaneous
  Country: DE (occurrence: DE)
  Receive Date: 20250528
  Receipt Date: 20250528
  Transmission Date: 20250716
  Serious: Yes (Other)
  Sender: ABBVIE
  Company Number: DE-ABBVIE-6296576

PATIENT
  Sex: Male

DRUGS (9)
  1. VENETOCLAX [Suspect]
     Active Substance: VENETOCLAX
     Indication: Chronic lymphocytic leukaemia
     Dosage: 100 MG IN THE MORNING WITH FOOD. DAY 15-21, FIRST ADMIN AND LAST ADMIN: 2022
     Route: 048
  2. VENETOCLAX [Suspect]
     Active Substance: VENETOCLAX
     Indication: Chronic lymphocytic leukaemia
     Dosage: 20 MG IN THE MORNING WITH FOOD. DAY 1, LAST ADMIN: 2022
     Route: 048
     Dates: start: 202208
  3. VENETOCLAX [Suspect]
     Active Substance: VENETOCLAX
     Indication: Chronic lymphocytic leukaemia
     Dosage: 20 MG IN THE MORNING WITH FOOD. DAY 2-7, FIRST ADMIN AND LAST ADMIN: 2022
     Route: 048
  4. VENETOCLAX [Suspect]
     Active Substance: VENETOCLAX
     Indication: Chronic lymphocytic leukaemia
     Dosage: 50 MG IN THE MORNING WITH FOOD. DAY 8-14, FIRST ADMIN AND LAST ADMIN: 2022
     Route: 048
  5. VENETOCLAX [Suspect]
     Active Substance: VENETOCLAX
     Indication: Chronic lymphocytic leukaemia
     Dosage: 200 MG IN THE MORNING WITH FOOD. DAY 22-27, FIRST ADMIN AND LAST ADMIN: 2022
     Route: 048
  6. VENETOCLAX [Suspect]
     Active Substance: VENETOCLAX
     Indication: Chronic lymphocytic leukaemia
     Dosage: 400 MG IN THE MORNING WITH FOOD. DAY 28-35, , FIRST ADMIN AND LAST ADMIN: 2022
     Route: 048
  7. VENETOCLAX [Suspect]
     Active Substance: VENETOCLAX
     Indication: Chronic lymphocytic leukaemia
     Dosage: 200 MG IN THE MORNING WITH FOOD. DAY 1-28, FIRST ADMIN: 2022
     Route: 048
  8. RITUXIMAB [Suspect]
     Active Substance: RITUXIMAB
     Indication: Chronic lymphocytic leukaemia
     Route: 065
     Dates: start: 202208
  9. Cyclophosphamide;Fludarabine;Rituximab [Concomitant]
     Indication: Product used for unknown indication

REACTIONS (6)
  - Renal failure [Unknown]
  - Hypercalcaemia [Unknown]
  - Arthralgia [Unknown]
  - C-reactive protein increased [Unknown]
  - Cytokine release syndrome [Unknown]
  - Groin pain [Unknown]
